FAERS Safety Report 13584650 (Version 2)
Quarter: 2017Q3

REPORT INFORMATION
  Report Type: Spontaneous
  Country: US (occurrence: US)
  Receive Date: 20170526
  Receipt Date: 20170811
  Transmission Date: 20171127
  Serious: No
  Sender: FDA-Public Use
  Company Number: US-PFIZER INC-2017227681

PATIENT
  Age: 73 Year
  Sex: Male
  Weight: 92.99 kg

DRUGS (24)
  1. ATORVASTATIN [Concomitant]
     Active Substance: ATORVASTATIN
     Indication: BLOOD CHOLESTEROL
     Dosage: 80 MG, 1X/DAY (ONCE AT NIGHT)
     Route: 048
  2. PANTOPRAZOLE [Concomitant]
     Active Substance: PANTOPRAZOLE
     Indication: DYSPEPSIA
     Dosage: 40 MG, 1X/DAY(AT NIGHT)
     Route: 048
  3. COLACE [Concomitant]
     Active Substance: DOCUSATE SODIUM
     Indication: FAECES SOFT
     Dosage: 100 MG, 1X/DAY
     Route: 048
     Dates: start: 201107
  4. CENTRUM SILVER ADULTS 50+ [Concomitant]
     Active Substance: MINERALS\VITAMINS
     Dosage: UNK UNK, 1X/DAY
     Route: 048
  5. MELATONIN [Concomitant]
     Active Substance: MELATONIN
     Indication: SLEEP DISORDER
     Dosage: 10 MG, DAILY (5 MG/TWO TABLETS EVERY NIGHT EARLY IN THE EVENING)
     Route: 048
  6. FUROSEMIDE. [Concomitant]
     Active Substance: FUROSEMIDE
     Indication: CARDIAC DISORDER
     Dosage: 20 MG, 1X/DAY
     Route: 048
  7. CITALOPRAM [Concomitant]
     Active Substance: CITALOPRAM HYDROBROMIDE
     Indication: PANIC ATTACK
     Dosage: 40 MG, 1X/DAY(AT NIGHT)
     Route: 048
  8. POTASSIUM [Concomitant]
     Active Substance: POTASSIUM
     Dosage: 50 MG, 1X/DAY
     Route: 048
     Dates: start: 201107
  9. GABAPENTIN. [Concomitant]
     Active Substance: GABAPENTIN
     Indication: CHONDROCALCINOSIS PYROPHOSPHATE
  10. OCUVITE [Concomitant]
     Active Substance: VITAMINS
     Indication: MACULAR DEGENERATION
     Dosage: UNK (ONCE A DAY IN THE MORNING)
     Route: 048
  11. INDOMETACIN [Concomitant]
     Active Substance: INDOMETHACIN
     Indication: OSTEOARTHRITIS
     Dosage: 25 MG, 1X/DAY (AT NIGHT)
     Route: 048
  12. INDOMETACIN [Concomitant]
     Active Substance: INDOMETHACIN
     Indication: CHONDROCALCINOSIS PYROPHOSPHATE
  13. CYCLOBENZAPRINE. [Concomitant]
     Active Substance: CYCLOBENZAPRINE
     Indication: MUSCLE RELAXANT THERAPY
     Dosage: 10 MG, 1X/DAY(AT NIGHT)
     Route: 048
     Dates: start: 2016
  14. PROBENECID. [Concomitant]
     Active Substance: PROBENECID
     Indication: CHONDROCALCINOSIS PYROPHOSPHATE
  15. TRAMADOL. [Concomitant]
     Active Substance: TRAMADOL
     Indication: PAIN
     Dosage: 300 MG, AS NEEDED (50 MG/TWO EVERY MORNING AND TWO AT LUNCH AND TWO AT NIGH)
     Route: 048
     Dates: start: 201701
  16. XELJANZ XR [Suspect]
     Active Substance: TOFACITINIB CITRATE
     Indication: CHONDROCALCINOSIS PYROPHOSPHATE
  17. XELJANZ XR [Suspect]
     Active Substance: TOFACITINIB CITRATE
     Indication: RHEUMATOID ARTHRITIS
     Dosage: 11 MG, 1X/DAY(IN THE MORNING)
     Route: 048
     Dates: start: 201702, end: 20170516
  18. XELJANZ XR [Suspect]
     Active Substance: TOFACITINIB CITRATE
     Indication: OSTEOARTHRITIS
  19. CARVEDILOL. [Concomitant]
     Active Substance: CARVEDILOL
     Indication: CARDIAC DISORDER
     Dosage: 6.25 MG, 1X/DAY (IN THE MORNING)
     Route: 048
  20. GABAPENTIN. [Concomitant]
     Active Substance: GABAPENTIN
     Indication: OSTEOARTHRITIS
     Dosage: 300 MG, 2X/DAY (ONE IN MORNING AND ONE AT NIGHT)
     Route: 048
  21. PANTOPRAZOLE [Concomitant]
     Active Substance: PANTOPRAZOLE
     Indication: DYSPEPSIA
  22. VALTREX [Concomitant]
     Active Substance: VALACYCLOVIR HYDROCHLORIDE
     Indication: GENITAL HERPES
     Dosage: 500 MG, 1X/DAY
     Route: 048
     Dates: start: 1977
  23. ASPIRIN. [Concomitant]
     Active Substance: ASPIRIN
     Indication: ANTICOAGULANT THERAPY
     Dosage: 5 MG, 1X/DAY(IN THE MORNING)
     Route: 048
     Dates: start: 201107
  24. PROBENECID. [Concomitant]
     Active Substance: PROBENECID
     Indication: OSTEOARTHRITIS
     Dosage: 1000 MG, 2X/DAY (TWO IN THE MORNING AND TWO AT NIGHT)
     Route: 048

REACTIONS (7)
  - Rhinorrhoea [Not Recovered/Not Resolved]
  - Pain in extremity [Unknown]
  - Upper respiratory tract infection [Unknown]
  - Arthralgia [Unknown]
  - Insomnia [Not Recovered/Not Resolved]
  - Cough [Not Recovered/Not Resolved]
  - Pain [Unknown]

NARRATIVE: CASE EVENT DATE: 201703
